FAERS Safety Report 19913730 (Version 1)
Quarter: 2021Q4

REPORT INFORMATION
  Report Type: Spontaneous
  Country: FR (occurrence: FR)
  Receive Date: 20211004
  Receipt Date: 20211004
  Transmission Date: 20220303
  Serious: Yes (Other)
  Sender: FDA-Public Use
  Company Number: None

PATIENT
  Age: 63 Year
  Sex: Female
  Weight: 61 kg

DRUGS (11)
  1. GEMCITABINE [Suspect]
     Active Substance: GEMCITABINE
     Indication: Ovarian cancer recurrent
     Dosage: 4000 MILLIGRAM, Q3W, 7 CURES
     Route: 042
     Dates: start: 20160211, end: 20160503
  2. CARBOPLATIN [Suspect]
     Active Substance: CARBOPLATIN
     Indication: Ovarian cancer recurrent
     Dosage: 555 MILLIGRAM, Q3W, 6 CURES
     Route: 042
     Dates: start: 20140801, end: 20141114
  3. CARBOPLATIN [Suspect]
     Active Substance: CARBOPLATIN
     Dosage: 520 MILLIGRAM, Q3W 4 CURES
     Route: 042
     Dates: start: 20160211, end: 20160503
  4. CARBOPLATIN [Suspect]
     Active Substance: CARBOPLATIN
     Dosage: 680 MILLIGRAM, Q3W, 6 CURES
     Route: 042
     Dates: start: 20170629, end: 20171128
  5. CARBOPLATIN [Suspect]
     Active Substance: CARBOPLATIN
     Dosage: 440 MILLIGRAM, Q3W, 4 CURES
     Route: 042
     Dates: start: 20200917, end: 20201210
  6. PACLITAXEL [Suspect]
     Active Substance: PACLITAXEL
     Indication: Ovarian cancer recurrent
     Dosage: 280 MILLIGRAM, Q3W, 6 CURES
     Route: 042
     Dates: start: 20140808, end: 20141114
  7. PACLITAXEL [Suspect]
     Active Substance: PACLITAXEL
     Dosage: 326 MILLIGRAM, MONTHLY (14 DOSES ON D1, D8, D15 (28-DAY CYCLES), 7 CURES)
     Route: 042
     Dates: start: 20170629, end: 20171205
  8. LYNPARZA [Suspect]
     Active Substance: OLAPARIB
     Indication: Ovarian cancer recurrent
     Dosage: UNK
     Route: 048
     Dates: start: 201411, end: 201502
  9. LYNPARZA [Suspect]
     Active Substance: OLAPARIB
     Dosage: 800 MILLIGRAM, QD
     Route: 048
     Dates: start: 201712, end: 202009
  10. DOXORUBICIN HYDROCHLORIDE [Suspect]
     Active Substance: DOXORUBICIN HYDROCHLORIDE
     Indication: Ovarian cancer recurrent
     Dosage: 48 MILLIGRAM, Q28D, 4 CURES
     Route: 042
     Dates: start: 20200917, end: 20201210
  11. AVASTIN [Suspect]
     Active Substance: BEVACIZUMAB
     Indication: Ovarian cancer recurrent
     Dosage: 945 MILLIGRAM, Q3W 23 CURES
     Route: 042
     Dates: start: 20160211, end: 20170530

REACTIONS (1)
  - Myelodysplastic syndrome [Not Recovered/Not Resolved]

NARRATIVE: CASE EVENT DATE: 20210125
